FAERS Safety Report 12059754 (Version 2)
Quarter: 2016Q1

REPORT INFORMATION
  Report Type: Spontaneous
  Country: US (occurrence: US)
  Receive Date: 20160210
  Receipt Date: 20160225
  Transmission Date: 20160526
  Serious: No
  Sender: FDA-Public Use
  Company Number: US-JNJFOC-20160203540

PATIENT
  Sex: Female
  Weight: 72.58 kg

DRUGS (7)
  1. TRAZODONE [Concomitant]
     Active Substance: TRAZODONE HYDROCHLORIDE
     Indication: SLEEP DISORDER THERAPY
     Route: 048
     Dates: start: 201512, end: 201512
  2. DURAGESIC [Suspect]
     Active Substance: FENTANYL
     Indication: MUSCLE SPASMS
     Route: 062
     Dates: start: 2011
  3. DURAGESIC [Suspect]
     Active Substance: FENTANYL
     Indication: PELVIC PAIN
     Route: 062
     Dates: start: 2011
  4. AZITHROMYCIN ANHYDROUS. [Concomitant]
     Active Substance: AZITHROMYCIN ANHYDROUS
     Indication: OVERGROWTH BACTERIAL
     Dosage: EVERY OTHER MONTH FOR 5 DAYS
     Route: 048
     Dates: start: 2003
  5. CYCLOBENZAPRINE [Concomitant]
     Active Substance: CYCLOBENZAPRINE
     Indication: MUSCLE SPASMS
     Route: 048
     Dates: start: 201512, end: 201512
  6. DURAGESIC [Suspect]
     Active Substance: FENTANYL
     Indication: MUSCLE SPASMS
     Route: 062
     Dates: start: 2011
  7. DURAGESIC [Suspect]
     Active Substance: FENTANYL
     Indication: PELVIC PAIN
     Route: 062
     Dates: start: 2011

REACTIONS (5)
  - Pain [Unknown]
  - Drug effect decreased [Unknown]
  - Hot flush [Not Recovered/Not Resolved]
  - Wrong technique in product usage process [Unknown]
  - Withdrawal syndrome [Unknown]

NARRATIVE: CASE EVENT DATE: 2011
